FAERS Safety Report 11314259 (Version 1)
Quarter: 2015Q3

REPORT INFORMATION
  Report Type: Spontaneous
  Country: SE (occurrence: SE)
  Receive Date: 20150727
  Receipt Date: 20150727
  Transmission Date: 20151125
  Serious: Yes (Other)
  Sender: FDA-Public Use
  Company Number: SE-GLAXOSMITHKLINE-SE2015083656

PATIENT
  Age: 72 Year
  Sex: Female

DRUGS (7)
  1. CLEMASTINE FUMARATE. [Concomitant]
     Active Substance: CLEMASTINE FUMARATE
     Indication: HYPERSENSITIVITY
     Dosage: DOSAGE FORM: UNSPECIFIED
     Route: 065
     Dates: start: 20150604
  2. CLEMASTINE FUMARATE. [Concomitant]
     Active Substance: CLEMASTINE FUMARATE
     Indication: ARTHRALGIA
  3. NICORETTE [Suspect]
     Active Substance: NICOTINE
     Indication: SMOKING CESSATION THERAPY
     Dosage: 2 MG, UNK
     Route: 048
  4. BETAPRED [Concomitant]
     Active Substance: BETAMETHASONE SODIUM PHOSPHATE
     Indication: HYPERSENSITIVITY
     Dosage: DOSAGE FORM: UNSPECIFIED
     Route: 065
  5. BETAPRED [Concomitant]
     Active Substance: BETAMETHASONE SODIUM PHOSPHATE
     Indication: ARTHRALGIA
     Dosage: DOSAGE FORM: UNSPECIFIED
     Route: 065
  6. BETAPRED [Concomitant]
     Active Substance: BETAMETHASONE SODIUM PHOSPHATE
     Indication: ARTHRITIS
     Dosage: DOSAGE FORM: UNSPECIFIED
     Route: 065
  7. CLEMASTINE FUMARATE. [Concomitant]
     Active Substance: CLEMASTINE FUMARATE
     Indication: ARTHRITIS

REACTIONS (8)
  - Abdominal pain upper [Unknown]
  - Incorrect drug administration duration [Unknown]
  - Tooth disorder [Unknown]
  - Headache [Unknown]
  - Nausea [Unknown]
  - Drug dependence [Not Recovered/Not Resolved]
  - Hypersensitivity [Unknown]
  - Dizziness [Unknown]
